FAERS Safety Report 22627539 (Version 1)
Quarter: 2023Q2

REPORT INFORMATION
  Report Type: Spontaneous
  Country: US (occurrence: US)
  Receive Date: 20230622
  Receipt Date: 20230622
  Transmission Date: 20230721
  Serious: Yes (Other)
  Sender: FDA-Public Use
  Company Number: US-SA-SAC20230620001226

PATIENT
  Sex: Female

DRUGS (20)
  1. AUBAGIO [Suspect]
     Active Substance: TERIFLUNOMIDE
     Dosage: UNK
     Route: 065
  2. AZELASTINE [Concomitant]
     Active Substance: AZELASTINE
  3. APIXABAN [Concomitant]
     Active Substance: APIXABAN
  4. ALBUTEROL [Concomitant]
     Active Substance: ALBUTEROL
  5. BUDESONIDE [Concomitant]
     Active Substance: BUDESONIDE
  6. FORMOTEROL FUMARATE [Concomitant]
     Active Substance: FORMOTEROL FUMARATE
  7. PREDNISONE [Concomitant]
     Active Substance: PREDNISONE
  8. FAMOTIDINE [Concomitant]
     Active Substance: FAMOTIDINE
  9. SUCRALFATE [Concomitant]
     Active Substance: SUCRALFATE
  10. BIMATOPROST [Concomitant]
     Active Substance: BIMATOPROST
  11. BRIMONIDINE TARTRATE [Concomitant]
     Active Substance: BRIMONIDINE TARTRATE
  12. BRINZOLAMIDE [Concomitant]
     Active Substance: BRINZOLAMIDE
  13. MIRABEGRON [Concomitant]
     Active Substance: MIRABEGRON
  14. SIMVASTATIN [Concomitant]
     Active Substance: SIMVASTATIN
  15. RANOLAZINE [Concomitant]
     Active Substance: RANOLAZINE
  16. DILTIAZEM [Concomitant]
     Active Substance: DILTIAZEM
  17. POLYETHYLENE GLYCOL 400 [Concomitant]
     Active Substance: POLYETHYLENE GLYCOL 400
  18. PROPYLENE GLYCOL [Concomitant]
     Active Substance: PROPYLENE GLYCOL
  19. NITROFURANTOIN [Concomitant]
     Active Substance: NITROFURANTOIN
  20. CHOLECALCIFEROL [Concomitant]
     Active Substance: CHOLECALCIFEROL

REACTIONS (10)
  - Thrombosis [Not Recovered/Not Resolved]
  - Interstitial lung disease [Not Recovered/Not Resolved]
  - Balance disorder [Not Recovered/Not Resolved]
  - Tremor [Not Recovered/Not Resolved]
  - Aphasia [Not Recovered/Not Resolved]
  - Allergic cough [Not Recovered/Not Resolved]
  - Oxygen saturation decreased [Not Recovered/Not Resolved]
  - Bronchitis [Not Recovered/Not Resolved]
  - Dyspnoea [Not Recovered/Not Resolved]
  - Nausea [Not Recovered/Not Resolved]
